FAERS Safety Report 12564012 (Version 1)
Quarter: 2016Q3

REPORT INFORMATION
  Report Type: Spontaneous
  Country: US (occurrence: None)
  Receive Date: 20160715
  Receipt Date: 20160715
  Transmission Date: 20161109
  Serious: Yes (Other)
  Sender: FDA-Public Use
  Company Number: None

PATIENT
  Age: 31 Year
  Sex: Male
  Weight: 86.18 kg

DRUGS (5)
  1. LUVOX [Concomitant]
     Active Substance: FLUVOXAMINE MALEATE
  2. TRINTELLIX [Suspect]
     Active Substance: VORTIOXETINE HYDROBROMIDE
     Indication: MAJOR DEPRESSION
     Dosage: 30 TABLET(S) IN THE MORNING TAKEN BY MOUTH
     Route: 048
  3. LISINIPRIL [Concomitant]
  4. KLONOPIN [Concomitant]
     Active Substance: CLONAZEPAM
  5. SEROQUEL ER [Concomitant]

REACTIONS (6)
  - Headache [None]
  - Feeling abnormal [None]
  - Nausea [None]
  - Blood glucose increased [None]
  - Hyperhidrosis [None]
  - Tremor [None]

NARRATIVE: CASE EVENT DATE: 20160701
